FAERS Safety Report 20613400 (Version 1)
Quarter: 2022Q1

REPORT INFORMATION
  Report Type: Spontaneous
  Country: US (occurrence: US)
  Receive Date: 20220319
  Receipt Date: 20220319
  Transmission Date: 20220423
  Serious: Yes (Other)
  Sender: FDA-Public Use
  Company Number: US-JNJFOC-20220324679

PATIENT
  Age: 63 Year
  Sex: Male

DRUGS (14)
  1. ERLEADA [Suspect]
     Active Substance: APALUTAMIDE
     Indication: Product used for unknown indication
     Route: 048
     Dates: start: 20181104, end: 202005
  2. ZYTIGA [Suspect]
     Active Substance: ABIRATERONE ACETATE
     Indication: Product used for unknown indication
     Route: 048
     Dates: start: 20200526, end: 20210707
  3. DOCETAXEL [Suspect]
     Active Substance: DOCETAXEL
     Indication: Product used for unknown indication
     Dosage: CYCLE -1
     Route: 065
     Dates: start: 20170131, end: 20170131
  4. DOCETAXEL [Suspect]
     Active Substance: DOCETAXEL
     Dosage: CYCLE -2
     Route: 065
     Dates: start: 20170221, end: 20170221
  5. DOCETAXEL [Suspect]
     Active Substance: DOCETAXEL
     Dosage: CYCLE -3
     Route: 065
     Dates: start: 20170314, end: 20170314
  6. DOCETAXEL [Suspect]
     Active Substance: DOCETAXEL
     Dosage: CYCLE -4
     Route: 065
     Dates: start: 20170404, end: 20170404
  7. DOCETAXEL [Suspect]
     Active Substance: DOCETAXEL
     Dosage: CYCLE -5
     Route: 065
     Dates: start: 20170425, end: 20170425
  8. DOCETAXEL [Suspect]
     Active Substance: DOCETAXEL
     Route: 065
     Dates: start: 20210524, end: 20210524
  9. JEVTANA [Suspect]
     Active Substance: CABAZITAXEL
     Indication: Product used for unknown indication
     Route: 065
     Dates: start: 20210904, end: 20210904
  10. JEVTANA [Suspect]
     Active Substance: CABAZITAXEL
     Route: 065
     Dates: start: 20210708, end: 20210708
  11. CARBOPLATIN [Suspect]
     Active Substance: CARBOPLATIN
     Indication: Product used for unknown indication
     Route: 065
     Dates: start: 20210708, end: 20210708
  12. RELUGOLIX [Suspect]
     Active Substance: RELUGOLIX
     Indication: Product used for unknown indication
     Route: 065
     Dates: start: 202104
  13. PREDNISOLONE [Suspect]
     Active Substance: PREDNISOLONE
     Indication: Product used for unknown indication
     Route: 065
     Dates: start: 20200526, end: 20210707
  14. LUPRON [Concomitant]
     Active Substance: LEUPROLIDE ACETATE
     Indication: Product used for unknown indication
     Route: 065
     Dates: start: 20161227, end: 20170124

REACTIONS (4)
  - Malignant neoplasm progression [Unknown]
  - Palmar-plantar erythrodysaesthesia syndrome [Unknown]
  - Oesophagitis [Unknown]
  - Pain [Unknown]
